FAERS Safety Report 8514906-5 (Version None)
Quarter: 2012Q3

REPORT INFORMATION
  Report Type: 
  Country: None (occurrence: None)
  Receive Date: 20120717
  Receipt Date: 20120704
  Transmission Date: 20120928
  Serious: Yes (Life-Threatening, Other)
  Sender: FDA-Public Use
  Company Number: CN-ROCHE-1077771

PATIENT
  Sex: Female
  Weight: 63 kg

DRUGS (5)
  1. AVASTIN [Suspect]
     Indication: BREAST CANCER
     Dosage: LAST DOSE: 21 JUL 2010
     Route: 042
     Dates: start: 20100316, end: 20100830
  2. CARBOPLATIN [Suspect]
     Indication: BREAST CANCER
     Dosage: LAST DOSE: 30 JUN 2010
     Route: 042
     Dates: start: 20100316
  3. DOCETAXEL [Suspect]
     Indication: BREAST CANCER
     Dosage: LAST DOSE: 30 JUN 2010
     Route: 042
     Dates: start: 20100316
  4. HERCEPTIN [Suspect]
     Indication: BREAST CANCER
     Dosage: LAST DOSE: 21 JUL 2010
     Route: 042
     Dates: start: 20100316, end: 20100830
  5. CLONAZEPAM [Suspect]
     Indication: PRODUCT USED FOR UNKNOWN INDICATION

REACTIONS (2)
  - NEUTROPENIA [None]
  - SUICIDE ATTEMPT [None]
